FAERS Safety Report 23948729 (Version 1)
Quarter: 2024Q2

REPORT INFORMATION
  Report Type: Spontaneous
  Country: FR (occurrence: FR)
  Receive Date: 20240607
  Receipt Date: 20240607
  Transmission Date: 20240716
  Serious: Yes (Other)
  Sender: FDA-Public Use
  Company Number: None

PATIENT
  Age: 63 Year
  Sex: Female
  Weight: 45 kg

DRUGS (7)
  1. KEPPRA [Suspect]
     Active Substance: LEVETIRACETAM
     Indication: Wrong product administered
     Dosage: 1000 MILLIGRAM
     Route: 048
     Dates: start: 20240320, end: 20240320
  2. KEPPRA [Suspect]
     Active Substance: LEVETIRACETAM
     Indication: Off label use
  3. FUROSEMIDE [Suspect]
     Active Substance: FUROSEMIDE
     Indication: Wrong product administered
     Dosage: 40 MILLIGRAM
     Route: 048
     Dates: start: 20240320, end: 20240320
  4. BISOPROLOL [Interacting]
     Active Substance: BISOPROLOL\BISOPROLOL FUMARATE
     Indication: Wrong product administered
     Dosage: 1.25 MILLIGRAM
     Route: 048
     Dates: start: 20240320, end: 20240320
  5. OXAZEPAM [Suspect]
     Active Substance: OXAZEPAM
     Indication: Wrong product administered
     Dosage: 10 MILLIGRAM
     Route: 048
     Dates: start: 20240320, end: 20240320
  6. ALLOPURINOL [Suspect]
     Active Substance: ALLOPURINOL
     Indication: Wrong product administered
     Dosage: 100 MILLIGRAM
     Route: 048
     Dates: start: 20240320, end: 20240320
  7. AMLODIPINE [Suspect]
     Active Substance: AMLODIPINE BESYLATE
     Indication: Wrong product administered
     Dosage: 10 MILLIGRAM
     Route: 048
     Dates: start: 20240320, end: 20240320

REACTIONS (4)
  - Hypotension [Recovered/Resolved]
  - Oxygen saturation decreased [Recovered/Resolved]
  - Wrong patient [Unknown]
  - Off label use [Unknown]

NARRATIVE: CASE EVENT DATE: 20240320
